FAERS Safety Report 9312940 (Version 1)
Quarter: 2013Q2

REPORT INFORMATION
  Report Type: Spontaneous
  Country: US (occurrence: US)
  Receive Date: 20130528
  Receipt Date: 20130528
  Transmission Date: 20140414
  Serious: No
  Sender: FDA-Public Use
  Company Number: US-ABBOTT-13P-163-1078910-00

PATIENT
  Age: 56 Year
  Sex: Male
  Weight: 127.12 kg

DRUGS (4)
  1. ANDROGEL [Suspect]
     Indication: BLOOD TESTOSTERONE DECREASED
     Dosage: APPROXIMATELY 1.5 YEARS
     Dates: start: 2012, end: 201303
  2. ZYRTEC [Concomitant]
     Indication: HYPERSENSITIVITY
  3. ZOCOR [Concomitant]
     Indication: BLOOD CHOLESTEROL INCREASED
  4. FLONASE [Concomitant]
     Indication: SEASONAL ALLERGY

REACTIONS (1)
  - Testicular pain [Not Recovered/Not Resolved]
